FAERS Safety Report 15298269 (Version 2)
Quarter: 2018Q3

REPORT INFORMATION
  Report Type: Report from Study
  Country: BR (occurrence: BR)
  Receive Date: 20180820
  Receipt Date: 20180831
  Transmission Date: 20181010
  Serious: Yes (Other)
  Sender: FDA-Public Use
  Company Number: PHHY2018BR076461

PATIENT
  Age: 85 Year
  Sex: Female
  Weight: 75 kg

DRUGS (7)
  1. CAPILAREMA [Concomitant]
     Indication: VARICOSE VEIN
     Dosage: 1 DF, QD (5 YEARS AGO)
     Route: 048
  2. CLONAZEPAM. [Concomitant]
     Active Substance: CLONAZEPAM
     Indication: PRODUCT USED FOR UNKNOWN INDICATION
     Route: 065
  3. EXELON PATCH [Suspect]
     Active Substance: RIVASTIGMINE
     Indication: DEMENTIA ALZHEIMER^S TYPE
     Dosage: 9.5 MG, QD, PATCH 10 (CM2) (BEGINNING OF AUG)
     Route: 062
     Dates: start: 201808
  4. VENAFLON [Concomitant]
     Indication: VARICOSE VEIN
     Dosage: 2 DF, QD (5 YEARS AGO)
     Route: 048
     Dates: start: 201808
  5. EXELON PATCH [Suspect]
     Active Substance: RIVASTIGMINE
     Indication: CEREBROVASCULAR ACCIDENT
     Dosage: 4.6 MG, QD, PATCH 5 (CM2) (UNITL EARLY AUG)
     Route: 062
     Dates: start: 201801, end: 201808
  6. ENALAPRIL [Concomitant]
     Active Substance: ENALAPRIL
     Indication: HYPERTENSION
     Dosage: 2 DF, QD (5 YEARS AGO)
     Route: 048
  7. LUMIGAN [Concomitant]
     Active Substance: BIMATOPROST
     Indication: GLAUCOMA
     Dosage: 1 DRP, QD EACH EYE (3 YEARS AGO)
     Route: 047

REACTIONS (7)
  - Depression [Recovering/Resolving]
  - Dementia Alzheimer^s type [Recovering/Resolving]
  - Insomnia [Recovering/Resolving]
  - Dyslalia [Recovering/Resolving]
  - Fall [Recovering/Resolving]
  - Cognitive disorder [Recovering/Resolving]
  - Lack of application site rotation [Recovering/Resolving]

NARRATIVE: CASE EVENT DATE: 20180707
